FAERS Safety Report 5403424-9 (Version None)
Quarter: 2007Q3

REPORT INFORMATION
  Report Type: 
  Country: None (occurrence: None)
  Receive Date: 20070713
  Receipt Date: 20070424
  Transmission Date: 20080115
  Serious: Yes (Hospitalization)
  Sender: FDA-Public Use
  Company Number: US-JNJFOC-20061102668

PATIENT
  Age: 37 Year
  Sex: Female
  Weight: 60.3284 kg

DRUGS (4)
  1. ORTHO EVRA [Suspect]
     Indication: DRUG USE FOR UNKNOWN INDICATION
     Dosage: TRANSDERMAL
     Route: 062
     Dates: start: 20030201, end: 20030501
  2. CORTISONE NASAL SPRAY (CORTISONE) [Concomitant]
  3. ALLEGRA [Concomitant]
  4. OCEAN SPRAY (SODIUM CHLORIDE) [Concomitant]

REACTIONS (1)
  - THROMBOPHLEBITIS SUPERFICIAL [None]
